FAERS Safety Report 13632608 (Version 1)
Quarter: 2017Q2

REPORT INFORMATION
  Report Type: Spontaneous
  Country: US (occurrence: US)
  Receive Date: 20170531
  Receipt Date: 20170531
  Transmission Date: 20170830
  Serious: No
  Sender: FDA-Public Use
  Company Number: US-ASTELLAS-1467921

PATIENT
  Sex: Female

DRUGS (6)
  1. VIACTIV [Concomitant]
     Active Substance: CALCIUM\VITAMIN D\VITAMIN K5
  2. DETROL [Concomitant]
     Active Substance: TOLTERODINE TARTRATE
  3. XGEVA [Concomitant]
     Active Substance: DENOSUMAB
  4. TARCEVA [Suspect]
     Active Substance: ERLOTINIB HYDROCHLORIDE
     Indication: LUNG NEOPLASM MALIGNANT
     Dosage: 6 DAYS A WEEK
     Route: 048
     Dates: start: 20140617
  5. TARCEVA [Suspect]
     Active Substance: ERLOTINIB HYDROCHLORIDE
     Indication: MALIGNANT MELANOMA
  6. TARCEVA [Suspect]
     Active Substance: ERLOTINIB HYDROCHLORIDE
     Indication: MALIGNANT RESPIRATORY TRACT NEOPLASM

REACTIONS (4)
  - Diarrhoea [Unknown]
  - Dry skin [Unknown]
  - Nail growth abnormal [Unknown]
  - Dry eye [Unknown]
